FAERS Safety Report 10271249 (Version 1)
Quarter: 2014Q1

REPORT INFORMATION
  Report Type: Spontaneous
  Country: US (occurrence: None)
  Receive Date: 20140306
  Receipt Date: 20140306
  Transmission Date: 20141002
  Serious: Yes (Other)
  Sender: FDA-Public Use
  Company Number: 163-21880-13083752

PATIENT
  Age: 61 Year
  Sex: Female

DRUGS (17)
  1. REVLIMID (LENALIDOMIDE) (10 MILLIGRAM, CAPSULES) [Suspect]
     Indication: PLASMA CELL MYELOMA
     Dosage: 5 MG, 1 IN 2D, PO
     Route: 048
     Dates: start: 20130801
  2. BUMETANIDE (BUMETANIDE) [Concomitant]
  3. ASPIRINE (ACETYLSALICYLIC ACID) (ENTERIC-COATED TABLET) [Concomitant]
  4. RANITIDINE HCL (RANITIDINE HYDROCHLORIDE) [Concomitant]
  5. CARVEDILOL (CARVEDILOL) [Concomitant]
  6. AMLODIPINE BESYLATE (AMLODIPINE BESILATE) [Concomitant]
  7. LEVOTHYROXINE SODIUM (LEVOTHYROXINE SODIUM) [Concomitant]
  8. PRAVASTATIN SODIUM (PRAVASTATIN SODIUM) [Concomitant]
  9. ACTOS (PIOGLITAZONE) [Concomitant]
  10. GLIMEPIRIDE (GLIMEPIRIDE) [Concomitant]
  11. ZYRTEX-D (CIRRUS) [Concomitant]
  12. SENNA-S (COLOXYL WITH SENNA) [Concomitant]
  13. VELCADE (BORTEZOMIB) [Concomitant]
  14. HYDROCODONE W/ACETAMINOPHEN (VICODIN) [Concomitant]
  15. HYDROCODONE/IBUPROFEN (VICOPROFEN) [Concomitant]
  16. CYCLOBENZAPRINE HCL (CYCLOBENZAPRINE HYDROCHLORIDE) [Concomitant]
  17. LOSARTAN POTASSIUM (LOSSARTAN POTASSIUM) [Concomitant]

REACTIONS (2)
  - Renal failure [None]
  - Pneumonia [None]
